FAERS Safety Report 15881846 (Version 2)
Quarter: 2019Q1

REPORT INFORMATION
  Report Type: Report from Study
  Country: US (occurrence: US)
  Receive Date: 20190128
  Receipt Date: 20190319
  Transmission Date: 20190417
  Serious: No
  Sender: FDA-Public Use
  Company Number: US-SA-2019SA022310

PATIENT
  Age: 85 Year
  Sex: Female

DRUGS (10)
  1. AZELASTINE HCL [Concomitant]
     Active Substance: AZELASTINE HYDROCHLORIDE
     Dosage: 205.5 UNK
  2. METOPROLOL TARTRATE. [Concomitant]
     Active Substance: METOPROLOL TARTRATE
     Dosage: UNK MG
  3. BENZONATATE. [Concomitant]
     Active Substance: BENZONATATE
     Dosage: UNK MG
  4. ALIROCUMAB [Suspect]
     Active Substance: ALIROCUMAB
     Indication: BLOOD CHOLESTEROL
     Dosage: 75 MG, Q3W
     Route: 058
     Dates: start: 201811
  5. MONTELUKAST SODIUM. [Concomitant]
     Active Substance: MONTELUKAST SODIUM
     Dosage: UNK MG
  6. AMLODIPINE BESYLATE. [Concomitant]
     Active Substance: AMLODIPINE BESYLATE
     Dosage: UNK MG
  7. REPATHA [Concomitant]
     Active Substance: EVOLOCUMAB
     Dosage: UNK, QM
     Dates: start: 2017
  8. ALIROCUMAB [Suspect]
     Active Substance: ALIROCUMAB
     Indication: TYPE V HYPERLIPIDAEMIA
  9. REPATHA [Concomitant]
     Active Substance: EVOLOCUMAB
     Dosage: UNK UNK, QOW
     Dates: start: 201708
  10. REPATHA [Concomitant]
     Active Substance: EVOLOCUMAB
     Dosage: UNK, Q3W
     Dates: start: 201712

REACTIONS (3)
  - Device use issue [Unknown]
  - Injection site bruising [Unknown]
  - Off label use [Unknown]
